FAERS Safety Report 24137272 (Version 1)
Quarter: 2024Q3

REPORT INFORMATION
  Report Type: Spontaneous
  Country: US (occurrence: None)
  Receive Date: 20240725
  Receipt Date: 20240725
  Transmission Date: 20241017
  Serious: No
  Sender: Public
  Company Number: None

PATIENT
  Age: 54 Year
  Sex: Female

DRUGS (2)
  1. DALFAMPRIDINE [Suspect]
     Active Substance: DALFAMPRIDINE
     Indication: Multiple sclerosis
     Dosage: FREQUENCY : TWICE A DAY;?
     Route: 048
     Dates: start: 202308
  2. OCREVUS [Concomitant]
     Active Substance: OCRELIZUMAB

REACTIONS (3)
  - Anxiety [None]
  - Depression [None]
  - Delusion [None]

NARRATIVE: CASE EVENT DATE: 20231001
